FAERS Safety Report 7367162-8 (Version None)
Quarter: 2011Q1

REPORT INFORMATION
  Report Type: 
  Country: None (occurrence: None)
  Receive Date: 20110322
  Receipt Date: 20110315
  Transmission Date: 20110831
  Serious: Yes (Other)
  Sender: FDA-Public Use
  Company Number: US-PFIZER INC-2011057902

PATIENT
  Age: 53 Year
  Sex: Male

DRUGS (2)
  1. ZOCOR [Suspect]
     Dosage: UNK
  2. LIPITOR [Suspect]
     Dosage: UNK

REACTIONS (2)
  - FATIGUE [None]
  - ACTIVITIES OF DAILY LIVING IMPAIRED [None]
